FAERS Safety Report 5744720-5 (Version None)
Quarter: 2008Q2

REPORT INFORMATION
  Report Type: 
  Country: None (occurrence: None)
  Receive Date: 20080516
  Receipt Date: 20080402
  Transmission Date: 20081010
  Serious: No
  Sender: FDA-Public Use
  Company Number: US023162

PATIENT
  Age: 48 Year
  Sex: Male
  Weight: 102.0593 kg

DRUGS (6)
  1. FENTORA [Suspect]
     Indication: CANCER PAIN
     Dosage: 600 UG FIVE TIMES A DAY BUCCAL
     Route: 002
     Dates: start: 20071101
  2. METHADONE HCL [Concomitant]
  3. NEURONTIN [Concomitant]
  4. NEXIUM [Concomitant]
  5. HYDROCHLOROTHIAZIDE [Concomitant]
  6. EXFORGE [Concomitant]

REACTIONS (3)
  - DRUG INEFFECTIVE [None]
  - INCORRECT ROUTE OF DRUG ADMINISTRATION [None]
  - PHARMACEUTICAL PRODUCT COMPLAINT [None]
